FAERS Safety Report 24828909 (Version 1)
Quarter: 2025Q1

REPORT INFORMATION
  Report Type: Spontaneous
  Country: US (occurrence: US)
  Receive Date: 20250110
  Receipt Date: 20250110
  Transmission Date: 20250408
  Serious: No
  Sender: STALLERGENES
  Company Number: US-AIMMUNE THERAPEUTICS, INC.-2024AIMT00622

PATIENT
  Age: 9 Year
  Sex: Female
  Weight: 33.04 kg

DRUGS (6)
  1. PALFORZIA [Suspect]
     Active Substance: PEANUT
     Indication: Food allergy
     Dates: start: 20231115, end: 20231115
  2. PALFORZIA [Suspect]
     Active Substance: PEANUT
     Indication: Anaphylactic reaction
     Dosage: 160 MG, 1X/DAY
     Dates: start: 20240315, end: 20240325
  3. PALFORZIA [Suspect]
     Active Substance: PEANUT
     Dates: start: 20240325, end: 20240325
  4. PALFORZIA [Suspect]
     Active Substance: PEANUT
     Dates: start: 20240401, end: 20240401
  5. ZYRTEC [Concomitant]
     Active Substance: CETIRIZINE HYDROCHLORIDE
     Indication: Seasonal allergy
     Dosage: 10 ML, 1X/DAY
  6. FLONASE [Concomitant]
     Active Substance: FLUTICASONE PROPIONATE
     Indication: Rhinitis allergic

REACTIONS (4)
  - Pyrexia [Recovered/Resolved]
  - Viral upper respiratory tract infection [Recovered/Resolved]
  - Wheezing [Recovered/Resolved]
  - Ageusia [Recovered/Resolved]

NARRATIVE: CASE EVENT DATE: 20240320
